FAERS Safety Report 7997040-2 (Version None)
Quarter: 2011Q4

REPORT INFORMATION
  Report Type: 
  Country: None (occurrence: None)
  Receive Date: 20111221
  Receipt Date: 20111215
  Transmission Date: 20120403
  Serious: Yes (Life-Threatening, Other)
  Sender: FDA-Public Use
  Company Number: PHHY2011GB109220

PATIENT
  Age: 69 Year
  Sex: Female
  Weight: 81 kg

DRUGS (11)
  1. OXYCONTIN [Concomitant]
  2. AMITRIPTYLINE HCL [Concomitant]
  3. SEREVENT [Concomitant]
  4. VENTOLIN [Concomitant]
  5. AMOXICILLIN [Suspect]
     Dosage: 500 MG, UNK
     Route: 048
     Dates: start: 20111021, end: 20111025
  6. ESOMEPRAZOLE [Concomitant]
  7. ACETYLCYSTEINE [Concomitant]
  8. FUROSEMIDE [Concomitant]
  9. AZATHIOPRINE [Concomitant]
  10. PREDNISOLONE [Concomitant]
  11. ACETAMINOPHEN [Concomitant]

REACTIONS (1)
  - INTERNATIONAL NORMALISED RATIO INCREASED [None]
